FAERS Safety Report 14448412 (Version 1)
Quarter: 2018Q1

REPORT INFORMATION
  Report Type: Spontaneous
  Country: US (occurrence: US)
  Receive Date: 20180126
  Receipt Date: 20180126
  Transmission Date: 20180509
  Serious: No
  Sender: FDA-Public Use
  Company Number: None

PATIENT
  Age: 65 Year
  Sex: Female

DRUGS (15)
  1. CALCIUM [Concomitant]
     Active Substance: CALCIUM
  2. LORATADINE. [Concomitant]
     Active Substance: LORATADINE
  3. BONE DENSITY BUILDER [Concomitant]
  4. LONSURF [Suspect]
     Active Substance: TIPIRACIL HYDROCHLORIDE\TRIFLURIDINE
     Indication: COLON CANCER
     Route: 048
     Dates: start: 20170918
  5. LOPERAMIDE [Concomitant]
     Active Substance: LOPERAMIDE
  6. LORAZEPAM. [Concomitant]
     Active Substance: LORAZEPAM
  7. MULTIVITAMIN [Concomitant]
     Active Substance: VITAMINS
  8. LONSURF [Suspect]
     Active Substance: TIPIRACIL HYDROCHLORIDE\TRIFLURIDINE
     Indication: METASTASES TO OVARY
     Route: 048
     Dates: start: 20170918
  9. VITAMIN B-6 [Concomitant]
     Active Substance: PYRIDOXINE
  10. ZOFRAN [Concomitant]
     Active Substance: ONDANSETRON HYDROCHLORIDE
  11. OMEPRAZOLE. [Concomitant]
     Active Substance: OMEPRAZOLE
  12. MOTRIN [Concomitant]
     Active Substance: IBUPROFEN
  13. MARINOL [Concomitant]
     Active Substance: DRONABINOL
  14. COMPAZINE [Concomitant]
     Active Substance: PROCHLORPERAZINE MALEATE
  15. VITAMIN C [Concomitant]
     Active Substance: ASCORBIC ACID

REACTIONS (3)
  - Drug ineffective [None]
  - Therapy change [None]
  - Neoplasm [None]

NARRATIVE: CASE EVENT DATE: 20180125
